FAERS Safety Report 14375690 (Version 3)
Quarter: 2020Q2

REPORT INFORMATION
  Report Type: Spontaneous
  Country: CZ (occurrence: CZ)
  Receive Date: 20180111
  Receipt Date: 20200609
  Transmission Date: 20200713
  Serious: Yes (Hospitalization)
  Sender: FDA-Public Use
  Company Number: CZ-MYLANLABS-2018M1002325

PATIENT
  Age: 51 Year
  Sex: Male

DRUGS (8)
  1. SERTRALINE [Suspect]
     Active Substance: SERTRALINE HYDROCHLORIDE
     Dosage: UNK
     Route: 048
  2. SERTRALINE [Suspect]
     Active Substance: SERTRALINE HYDROCHLORIDE
     Indication: DEPRESSION
     Dosage: 100 MILLIGRAM
     Route: 048
  3. OXAZEPAM. [Concomitant]
     Active Substance: OXAZEPAM
     Indication: DEPRESSION
     Dosage: UNK
     Route: 065
  4. TRITTICO AC [Concomitant]
     Active Substance: TRAZODONE HYDROCHLORIDE
     Indication: DEPRESSION
     Dosage: UNK
  5. SERTRALINE [Suspect]
     Active Substance: SERTRALINE HYDROCHLORIDE
     Indication: ADJUVANT THERAPY
     Dosage: 200 MILLIGRAM IN CASE EXACERBATIONS
     Route: 048
  6. ACAMPROSATE [Concomitant]
     Active Substance: ACAMPROSATE
     Indication: DEPRESSION
     Dosage: UNK
     Route: 065
  7. BUSPIRON                           /00791501/ [Concomitant]
     Active Substance: BUTYLSCOPOLAMINE BROMIDE\METAMIZOLE SODIUM
     Indication: ANXIETY
     Dosage: UNK
     Route: 065
  8. TRITTICO AC [Concomitant]
     Active Substance: TRAZODONE HYDROCHLORIDE
     Indication: INSOMNIA

REACTIONS (6)
  - Suicidal ideation [Recovering/Resolving]
  - General physical health deterioration [Unknown]
  - Somnolence [Recovering/Resolving]
  - Alcohol poisoning [Not Recovered/Not Resolved]
  - Mood altered [Recovering/Resolving]
  - Withdrawal syndrome [Recovering/Resolving]
